FAERS Safety Report 25031346 (Version 1)
Quarter: 2025Q1

REPORT INFORMATION
  Report Type: Spontaneous
  Country: US (occurrence: None)
  Receive Date: 20250228
  Receipt Date: 20250228
  Transmission Date: 20250409
  Serious: No
  Sender: FDA-CTU
  Company Number: None

PATIENT
  Age: 60 Year
  Sex: Female
  Weight: 103.95 kg

DRUGS (5)
  1. ZEPBOUND [Suspect]
     Active Substance: TIRZEPATIDE
     Indication: Weight decreased
     Route: 058
  2. Pantraprazole [Concomitant]
  3. PREGABALIN [Concomitant]
     Active Substance: PREGABALIN
  4. LEXAPRO [Concomitant]
     Active Substance: ESCITALOPRAM OXALATE
  5. CELEBREX [Concomitant]
     Active Substance: CELECOXIB

REACTIONS (6)
  - Muscular weakness [None]
  - Myalgia [None]
  - Dizziness [None]
  - Abdominal discomfort [None]
  - Chills [None]
  - Therapy cessation [None]

NARRATIVE: CASE EVENT DATE: 20250226
